FAERS Safety Report 7642410-5 (Version None)
Quarter: 2011Q3

REPORT INFORMATION
  Report Type: 
  Country: None (occurrence: None)
  Receive Date: 20110728
  Receipt Date: 20100913
  Transmission Date: 20111222
  Serious: No
  Sender: FDA-Public Use
  Company Number: US-MYLANLABS-2010S1015834

PATIENT
  Age: 57 Year
  Sex: Female

DRUGS (2)
  1. LEVOTHYROXINE SODIUM [Suspect]
     Indication: HYPOTHYROIDISM
     Route: 048
     Dates: start: 20100805, end: 20100824
  2. HYDROCHLOROTHIAZIDE [Concomitant]

REACTIONS (6)
  - OVERDOSE [None]
  - ABDOMINAL DISCOMFORT [None]
  - ALOPECIA [None]
  - THYROXINE INCREASED [None]
  - INCORRECT DOSE ADMINISTERED [None]
  - TREMOR [None]
